FAERS Safety Report 23159219 (Version 2)
Quarter: 2025Q2

REPORT INFORMATION
  Report Type: Spontaneous
  Country: ES (occurrence: ES)
  Receive Date: 20231108
  Receipt Date: 20250414
  Transmission Date: 20250717
  Serious: Yes (Other)
  Sender: SANOFI AVENTIS
  Company Number: ES-SA-2023SA340120

PATIENT
  Age: 14 Year
  Sex: Male

DRUGS (3)
  1. ELOCTA [Suspect]
     Active Substance: EFMOROCTOCOG ALFA
     Indication: Factor VIII deficiency
     Dosage: UNK UNK, BIW
     Route: 065
     Dates: start: 2022
  2. ELOCTA [Suspect]
     Active Substance: EFMOROCTOCOG ALFA
     Indication: Factor VIII deficiency
     Dosage: UNK UNK, BIW
     Route: 065
     Dates: start: 2022
  3. EMICIZUMAB [Concomitant]
     Active Substance: EMICIZUMAB
     Indication: Product used for unknown indication
     Dates: start: 202301, end: 202306

REACTIONS (3)
  - Haemarthrosis [Recovered/Resolved]
  - Traumatic haematoma [Recovered/Resolved]
  - Anti factor VIII antibody positive [Unknown]

NARRATIVE: CASE EVENT DATE: 20220101
